FAERS Safety Report 11999090 (Version 1)
Quarter: 2016Q1

REPORT INFORMATION
  Report Type: Spontaneous
  Country: US (occurrence: None)
  Receive Date: 20160203
  Receipt Date: 20160203
  Transmission Date: 20160526
  Serious: Yes (Life-Threatening, Hospitalization)
  Sender: FDA-Public Use
  Company Number: None

PATIENT
  Age: 47 Year
  Sex: Female
  Weight: 55.79 kg

DRUGS (3)
  1. ANIMAS INSULIN PUMP [Suspect]
     Active Substance: DEVICE
  2. ZOLOFT [Concomitant]
     Active Substance: SERTRALINE HYDROCHLORIDE
  3. INSULIN [Suspect]
     Active Substance: INSULIN NOS

REACTIONS (5)
  - Device malfunction [None]
  - Incorrect dose administered by device [None]
  - Malaise [None]
  - Diabetic ketoacidosis [None]
  - Infection [None]

NARRATIVE: CASE EVENT DATE: 20160122
